FAERS Safety Report 21050676 (Version 2)
Quarter: 2022Q3

REPORT INFORMATION
  Report Type: Spontaneous
  Country: US (occurrence: US)
  Receive Date: 20220707
  Receipt Date: 20220903
  Transmission Date: 20221027
  Serious: No
  Sender: FDA-Public Use
  Company Number: US-NOVARTISTESTPH-NVSC2022US154066

PATIENT
  Age: 40 Year
  Sex: Female

DRUGS (1)
  1. OMNITROPE [Suspect]
     Active Substance: SOMATROPIN
     Indication: Product used for unknown indication
     Dosage: 5.8 MG, QD
     Route: 065

REACTIONS (3)
  - Product quality issue [Unknown]
  - Product preparation issue [Unknown]
  - Underdose [Unknown]

NARRATIVE: CASE EVENT DATE: 20220624
